FAERS Safety Report 9683586 (Version 1)
Quarter: 2013Q4

REPORT INFORMATION
  Report Type: Spontaneous
  Country: US (occurrence: US)
  Receive Date: 20131112
  Receipt Date: 20131112
  Transmission Date: 20140711
  Serious: Yes (Hospitalization)
  Sender: FDA-Public Use
  Company Number: US-VERTEX PHARMACEUTICALS INC-2013-010986

PATIENT
  Sex: 0

DRUGS (3)
  1. INCIVEK [Suspect]
     Indication: HEPATITIS C
  2. OTHER THERAPEUTIC PRODUCTS [Suspect]
     Indication: HEPATITIS C
  3. OTHER THERAPEUTIC PRODUCTS [Suspect]
     Indication: HEPATITIS C

REACTIONS (1)
  - Investigation [Unknown]
